FAERS Safety Report 7688290-3 (Version None)
Quarter: 2011Q3

REPORT INFORMATION
  Report Type: 
  Country: None (occurrence: None)
  Receive Date: 20110817
  Receipt Date: 20101124
  Transmission Date: 20111222
  Serious: No
  Sender: FDA-Public Use
  Company Number: US-KINGPHARMUSA00001-K201001432

PATIENT
  Age: 63 Year
  Sex: Female
  Weight: 58.957 kg

DRUGS (3)
  1. LEVOTHYROXINE SODIUM [Suspect]
     Dosage: 37.5 MCG, QD
     Route: 048
     Dates: start: 20091001
  2. CYTOMEL [Suspect]
     Indication: HYPOTHYROIDISM
     Dosage: 6.25 MCG, QD
     Route: 048
     Dates: start: 20000101
  3. HORMONES [Concomitant]
     Indication: MENOPAUSE
     Dosage: UNK
     Route: 061
     Dates: start: 20000101

REACTIONS (5)
  - BLOOD THYROID STIMULATING HORMONE INCREASED [None]
  - EXOPHTHALMOS [None]
  - EXPIRED DRUG ADMINISTERED [None]
  - THYROXINE INCREASED [None]
  - HYPERTHYROIDISM [None]
